FAERS Safety Report 7878365-8 (Version None)
Quarter: 2011Q4

REPORT INFORMATION
  Report Type: 
  Country: None (occurrence: None)
  Receive Date: 20111101
  Receipt Date: 20111019
  Transmission Date: 20120403
  Serious: Yes (Hospitalization)
  Sender: FDA-Public Use
  Company Number: GB-RANBAXY-2011RR-49975

PATIENT
  Age: 46 Year

DRUGS (4)
  1. HALOPERIDOL [Suspect]
     Indication: PRODUCT USED FOR UNKNOWN INDICATION
     Dosage: UNK
     Route: 065
  2. GABAPENTIN [Suspect]
     Dosage: UNK
     Route: 065
  3. PROPOFOL [Suspect]
     Indication: PRODUCT USED FOR UNKNOWN INDICATION
     Dosage: HIGHER THAN 4MG/KG/H , MORE THAN 48H
     Route: 042
  4. MORPHINE [Suspect]
     Indication: PRODUCT USED FOR UNKNOWN INDICATION
     Dosage: UNK
     Route: 065

REACTIONS (3)
  - HYPOPHOSPHATAEMIA [None]
  - SEPSIS [None]
  - RHABDOMYOLYSIS [None]
